FAERS Safety Report 10516936 (Version 1)
Quarter: 2014Q4

REPORT INFORMATION
  Report Type: Report from Study
  Country: JP (occurrence: JP)
  Receive Date: 20141014
  Receipt Date: 20141014
  Transmission Date: 20150528
  Serious: Yes (Death)
  Sender: FDA-Public Use
  Company Number: JP-TEVA-515100ISR

PATIENT
  Age: 83 Year
  Sex: Male

DRUGS (2)
  1. NEDAPLATIN [Suspect]
     Active Substance: NEDAPLATIN
     Indication: NON-SMALL CELL LUNG CANCER STAGE IIIB
     Dosage: 4 CYCLES: 50 MG/M2 ON DAY 1 AND 8, EVERY 4 WEEKS
     Route: 065
  2. IRINOTECAN [Suspect]
     Active Substance: IRINOTECAN
     Indication: NON-SMALL CELL LUNG CANCER STAGE IIIB
     Dosage: 4 CYCLES: 50 MG/M2 ON DAY 1 AND 8, EVERY 4 WEEKS
     Route: 065

REACTIONS (2)
  - Febrile neutropenia [Fatal]
  - Diarrhoea [Fatal]
